FAERS Safety Report 15612766 (Version 1)
Quarter: 2018Q4

REPORT INFORMATION
  Report Type: Spontaneous
  Country: IT (occurrence: IT)
  Receive Date: 20181113
  Receipt Date: 20181113
  Transmission Date: 20190205
  Serious: Yes (Other)
  Sender: FDA-Public Use
  Company Number: IT-SAOL THERAPEUTICS-2018SAO01063

PATIENT
  Age: 2 Day
  Sex: Male

DRUGS (1)
  1. VARICELLA ZOSTER IMMUNE GLOBULIN [Suspect]
     Active Substance: HUMAN VARICELLA-ZOSTER IMMUNE GLOBULIN
     Dosage: UNK
     Route: 064

REACTIONS (2)
  - Varicella [Recovered/Resolved]
  - Foetal exposure during pregnancy [Recovered/Resolved]
